FAERS Safety Report 6603256-X (Version None)
Quarter: 2010Q1

REPORT INFORMATION
  Report Type: 
  Country: None (occurrence: None)
  Receive Date: 20100226
  Receipt Date: 20100215
  Transmission Date: 20100710
  Serious: Yes (Death)
  Sender: FDA-Public Use
  Company Number: US-JNJFOC-20100208288

PATIENT
  Sex: Female
  Weight: 55.34 kg

DRUGS (7)
  1. DURAGESIC-100 [Suspect]
     Indication: DRUG USE FOR UNKNOWN INDICATION
     Route: 062
  2. ECGONINE BENZOATE [Suspect]
     Indication: DRUG USE FOR UNKNOWN INDICATION
     Route: 065
  3. TRAMADOL HCL [Suspect]
     Indication: DRUG USE FOR UNKNOWN INDICATION
     Route: 065
  4. COCAINE [Suspect]
     Indication: DRUG USE FOR UNKNOWN INDICATION
     Route: 065
  5. LYRICA [Concomitant]
     Route: 065
  6. NEURONTIN [Concomitant]
     Route: 065
  7. FLURAZEPAM [Concomitant]
     Route: 065

REACTIONS (6)
  - BRONCHOPNEUMONIA [None]
  - CONVULSION [None]
  - CORONARY ARTERY DISEASE [None]
  - HYPERTENSION [None]
  - MULTIPLE DRUG OVERDOSE [None]
  - TOBACCO ABUSE [None]
